FAERS Safety Report 22638567 (Version 1)
Quarter: 2023Q2

REPORT INFORMATION
  Report Type: Report from Study
  Country: EG (occurrence: EG)
  Receive Date: 20230626
  Receipt Date: 20230626
  Transmission Date: 20230722
  Serious: Yes (Other)
  Sender: FDA-Public Use
  Company Number: EG-Merck Healthcare KGaA-2023456044

PATIENT
  Sex: Male

DRUGS (1)
  1. REBIF [Suspect]
     Active Substance: INTERFERON BETA-1A
     Indication: Multiple sclerosis
     Route: 058

REACTIONS (11)
  - Facial paralysis [Recovered/Resolved]
  - Paralysis [Recovered/Resolved]
  - Head banging [Unknown]
  - Pain [Not Recovered/Not Resolved]
  - Vision blurred [Not Recovered/Not Resolved]
  - Fall [Unknown]
  - Feeling hot [Not Recovered/Not Resolved]
  - Balance disorder [Recovered/Resolved]
  - Nervousness [Not Recovered/Not Resolved]
  - Headache [Not Recovered/Not Resolved]
  - Inappropriate schedule of product administration [Recovered/Resolved]
